FAERS Safety Report 7554671-1 (Version None)
Quarter: 2011Q2

REPORT INFORMATION
  Report Type: 
  Country: None (occurrence: None)
  Receive Date: 20110617
  Receipt Date: 20110607
  Transmission Date: 20111010
  Serious: Yes (Death)
  Sender: FDA-Public Use
  Company Number: PL-CELGENEUS-129-50794-11060989

PATIENT
  Sex: Male

DRUGS (1)
  1. VIDAZA [Suspect]
     Dosage: 135 MILLIGRAM
     Route: 065

REACTIONS (2)
  - CARDIOPULMONARY FAILURE [None]
  - HEPATIC FAILURE [None]
